FAERS Safety Report 8505137-3 (Version None)
Quarter: 2012Q3

REPORT INFORMATION
  Report Type: 
  Country: None (occurrence: None)
  Receive Date: 20120712
  Receipt Date: 20120703
  Transmission Date: 20120928
  Serious: Yes (Hospitalization)
  Sender: FDA-Public Use
  Company Number: US-CELGENEUS-163-AB007-12052161

PATIENT
  Sex: Male
  Weight: 51.9 kg

DRUGS (28)
  1. ABRAXANE [Suspect]
     Route: 041
     Dates: start: 20120124
  2. MULTI-VITAMINS [Concomitant]
     Indication: SUPPLEMENTATION THERAPY
     Route: 048
     Dates: start: 19900101
  3. NYSTATIN [Concomitant]
     Dosage: 100000 UNITS/ML
     Route: 048
     Dates: start: 20120228
  4. ASPIRIN [Concomitant]
     Indication: SUPPLEMENTATION THERAPY
     Dosage: 81 MILLIGRAM
     Route: 048
     Dates: start: 19900101, end: 20120111
  5. DEXAMETHASONE [Concomitant]
     Indication: FATIGUE
     Dosage: 1 MILLIGRAM
     Route: 048
     Dates: start: 20120313
  6. RED BLOOD CELL TRANSFUSION [Concomitant]
     Route: 041
     Dates: start: 20120516, end: 20120516
  7. MIRTAZAPINE [Concomitant]
     Route: 048
  8. RANITIDINE [Concomitant]
     Dosage: 450 MILLIGRAM
     Route: 048
     Dates: start: 20111201, end: 20120228
  9. ONDANSETRON [Concomitant]
     Route: 048
     Dates: start: 20120111
  10. SENNA-MINT WAF [Concomitant]
     Indication: CONSTIPATION
     Dosage: 30 MILLIGRAM
     Route: 048
     Dates: start: 20120210
  11. LACTULOSE [Concomitant]
     Route: 048
     Dates: start: 20111201, end: 20120210
  12. GEMCITABINE [Suspect]
     Route: 041
     Dates: start: 20120508, end: 20120515
  13. PROCHLORPERAZINE [Concomitant]
     Indication: VOMITING
  14. MORPHINE SULFATE [Concomitant]
     Indication: ABDOMINAL PAIN
     Dosage: 15 MILLIGRAM
     Route: 048
     Dates: start: 20120120
  15. MIRALAX [Concomitant]
     Indication: CONSTIPATION
     Route: 048
     Dates: start: 20111201, end: 20120210
  16. ATORVASTATIN [Concomitant]
     Dosage: 10 MILLIGRAM
     Route: 048
     Dates: start: 19990101
  17. CREON [Concomitant]
     Dosage: 24000 UNIT
     Route: 048
     Dates: start: 20120228
  18. VICODIN [Concomitant]
     Indication: ABDOMINAL PAIN
     Dosage: 10/500
     Route: 048
     Dates: start: 20111201, end: 20120120
  19. COLACE [Concomitant]
     Indication: CONSTIPATION
     Dosage: 200 MILLIGRAM
     Route: 048
     Dates: start: 20120210
  20. ZOFRAN [Concomitant]
     Dosage: 24 MILLIGRAM
     Route: 048
     Dates: start: 20120111
  21. ABRAXANE [Suspect]
     Route: 041
     Dates: start: 20120508, end: 20120515
  22. GEMCITABINE [Suspect]
     Route: 041
     Dates: start: 20120124
  23. PROCHLORPERAZINE [Concomitant]
     Dosage: 40 MILLIGRAM
     Route: 048
     Dates: start: 20120111
  24. OXYCODONE HCL [Concomitant]
     Indication: ABDOMINAL PAIN
     Dosage: 15 MILLIGRAM
     Route: 048
     Dates: start: 20120120
  25. OXYCONTIN [Concomitant]
     Indication: ABDOMINAL PAIN
     Dosage: 60 MILLIGRAM
     Route: 048
     Dates: start: 20120214
  26. OMEPRAZOLE [Concomitant]
     Dosage: 20 MILLIGRAM
     Route: 048
     Dates: start: 20120228
  27. ALEVE [Concomitant]
     Indication: ABDOMINAL PAIN
     Dosage: 220 MILLIGRAM
     Route: 048
     Dates: start: 20111201, end: 20120111
  28. CITALOPRAM HYDROBROMIDE [Concomitant]
     Indication: DEPRESSION
     Route: 048
     Dates: start: 20110101, end: 20120201

REACTIONS (1)
  - COLITIS [None]
